FAERS Safety Report 6400196-6 (Version None)
Quarter: 2009Q4

REPORT INFORMATION
  Report Type: 
  Country: None (occurrence: None)
  Receive Date: 20091014
  Receipt Date: 20091005
  Transmission Date: 20100525
  Serious: Yes (Disabling, Other)
  Sender: FDA-Public Use
  Company Number: US-PFIZER INC-2009279035

PATIENT
  Sex: Female
  Weight: 72 kg

DRUGS (5)
  1. PROVERA [Suspect]
     Indication: HORMONE REPLACEMENT THERAPY
     Dosage: UNK
     Route: 048
     Dates: start: 19800101, end: 19980101
  2. PREMARIN [Suspect]
     Indication: HORMONE REPLACEMENT THERAPY
     Dosage: UNK
     Dates: start: 19900101, end: 19950101
  3. ACETYLSALICYLIC ACID [Concomitant]
     Indication: PAIN
     Dosage: UNK
     Dates: start: 19890101, end: 20000101
  4. ISOSORBIDE [Concomitant]
     Dosage: UNK
     Dates: start: 19890101
  5. LISINOPRIL [Concomitant]
     Indication: HYPERTENSION
     Dosage: UNK
     Dates: start: 19890101

REACTIONS (1)
  - BREAST CANCER [None]
